FAERS Safety Report 7584337-3 (Version None)
Quarter: 2011Q2

REPORT INFORMATION
  Report Type: 
  Country: None (occurrence: None)
  Receive Date: 20110630
  Receipt Date: 20110620
  Transmission Date: 20111010
  Serious: Yes (Other)
  Sender: FDA-Public Use
  Company Number: CZ-UCBSA-010524

PATIENT
  Sex: Male
  Weight: 85 kg

DRUGS (4)
  1. CERTOLIZUMAB PEGOL [Suspect]
     Indication: CROHN'S DISEASE
     Route: 058
     Dates: start: 20050506, end: 20100310
  2. BUDENOFALK [Concomitant]
     Indication: CROHN'S DISEASE
     Route: 048
     Dates: start: 20031201
  3. AMLODIPINE BESYLATE [Concomitant]
     Indication: HYPERTENSION
     Route: 048
     Dates: start: 20030101
  4. PENTASA [Concomitant]
     Indication: CROHN'S DISEASE
     Route: 048
     Dates: start: 19950101

REACTIONS (1)
  - GASTROINTESTINAL MUCOSAL DISORDER [None]
